FAERS Safety Report 7385981-9 (Version None)
Quarter: 2011Q1

REPORT INFORMATION
  Report Type: 
  Country: None (occurrence: None)
  Receive Date: 20110331
  Receipt Date: 20091122
  Transmission Date: 20110831
  Serious: Yes (Death, Hospitalization, Other)
  Sender: FDA-Public Use
  Company Number: US-BAYER-201039442NA

PATIENT
  Sex: Male
  Weight: 113.38 kg

DRUGS (20)
  1. ASPIRIN [Concomitant]
     Route: 048
  2. NITROGLYCERIN [Concomitant]
  3. POTASSIUM CHLORIDE [Concomitant]
     Dosage: UNK
     Route: 042
     Dates: start: 20060616
  4. LOVENOX [Concomitant]
     Route: 048
  5. HEPARIN SODIUM [Concomitant]
     Dosage: UNK
     Route: 042
     Dates: start: 20060616, end: 20060616
  6. IMDUR [Concomitant]
     Route: 048
  7. TRASYLOL [Suspect]
     Indication: CORONARY ARTERY BYPASS
     Dosage: TEST DOSE (1ML) LOADING DOSE (100ML THEN 25ML/HR)
     Route: 042
     Dates: start: 20060616, end: 20060616
  8. LIPITOR [Concomitant]
     Dosage: UNK
     Route: 048
     Dates: start: 20060131
  9. DILTIAZEM [Concomitant]
     Dosage: UNK
     Route: 042
     Dates: start: 20060616, end: 20060616
  10. DOPAMINE HCL [Concomitant]
     Dosage: UNK
     Route: 042
     Dates: start: 20060616
  11. METOPROLOL [Concomitant]
     Route: 048
  12. K-DUR [Concomitant]
     Route: 048
  13. PROTAMINE SULFATE [Concomitant]
     Dosage: UNK
     Route: 042
     Dates: start: 20060616
  14. PRIMACOR [Concomitant]
     Dosage: UNK
     Route: 042
     Dates: start: 20060616, end: 20060616
  15. MANNITOL [Concomitant]
     Dosage: 50 PRIME
     Dates: start: 20060616, end: 20060616
  16. INSULIN [INSULIN] [Concomitant]
     Dosage: UNK
     Route: 042
     Dates: start: 20060616
  17. PLAVIX [Concomitant]
     Dosage: UNK
     Route: 048
     Dates: start: 20060131
  18. BUMEX [Concomitant]
     Dosage: UNK
     Route: 048
     Dates: start: 20060615
  19. DOBUTAMINE [Concomitant]
     Dosage: UNK
     Route: 042
     Dates: start: 20060616, end: 20060616
  20. COZAAR [Concomitant]
     Route: 048

REACTIONS (13)
  - INTESTINAL ISCHAEMIA [None]
  - ANXIETY [None]
  - FEAR [None]
  - PAIN [None]
  - HYPOXIA [None]
  - RENAL FAILURE [None]
  - STRESS [None]
  - RENAL INJURY [None]
  - EMOTIONAL DISTRESS [None]
  - INJURY [None]
  - UNEVALUABLE EVENT [None]
  - RENAL IMPAIRMENT [None]
  - MULTI-ORGAN FAILURE [None]
